FAERS Safety Report 25946488 (Version 1)
Quarter: 2025Q4

REPORT INFORMATION
  Report Type: Spontaneous
  Country: US (occurrence: US)
  Receive Date: 20251022
  Receipt Date: 20251022
  Transmission Date: 20260117
  Serious: Yes (Other)
  Sender: PACIRA
  Company Number: US-ORG100016242-2024000692

PATIENT
  Age: 82 Year
  Sex: Female

DRUGS (1)
  1. ZILRETTA [Suspect]
     Active Substance: TRIAMCINOLONE ACETONIDE
     Indication: Knee operation
     Dosage: NOT PROVIDED
     Route: 065
     Dates: start: 20241202, end: 20241202

REACTIONS (2)
  - Injection site joint infection [Unknown]
  - Off label use [Unknown]

NARRATIVE: CASE EVENT DATE: 20241201
